FAERS Safety Report 7376069-1 (Version None)
Quarter: 2011Q1

REPORT INFORMATION
  Report Type: 
  Country: None (occurrence: None)
  Receive Date: 20110325
  Receipt Date: 20110322
  Transmission Date: 20110831
  Serious: Yes (Other)
  Sender: FDA-Public Use
  Company Number: FI-ASTRAZENECA-2011SE14147

PATIENT
  Age: 785 Month
  Sex: Male

DRUGS (8)
  1. SIMVASTATIN [Concomitant]
     Route: 048
  2. MULTAQ [Interacting]
     Indication: ATRIAL FIBRILLATION
     Route: 048
     Dates: start: 20110110, end: 20110120
  3. MICARDIS [Concomitant]
     Indication: HYPERTENSION
     Route: 048
     Dates: start: 20110117, end: 20110120
  4. MAREVAN FORTE [Concomitant]
     Route: 048
  5. PRIMASPAN [Concomitant]
     Route: 048
  6. PLENDIL [Suspect]
     Indication: HYPERTENSION
     Route: 048
     Dates: start: 20110117, end: 20110120
  7. MICARDIS [Concomitant]
     Route: 048
     Dates: start: 20110114, end: 20110117
  8. EMCONCOR CHF [Concomitant]
     Route: 048
     Dates: start: 20110117

REACTIONS (2)
  - ORTHOSTATIC HYPOTENSION [None]
  - DRUG INTERACTION [None]
